FAERS Safety Report 8606996 (Version 2)
Quarter: 2013Q3

REPORT INFORMATION
  Report Type: Spontaneous
  Country: US (occurrence: US)
  Receive Date: 20120611
  Receipt Date: 20130726
  Transmission Date: 20140515
  Serious: No
  Sender: FDA-Public Use
  Company Number: US-ASTRAZENECA-2012SE34499

PATIENT
  Age: 512 Month
  Sex: Female

DRUGS (36)
  1. NEXIUM [Suspect]
     Indication: GASTROOESOPHAGEAL REFLUX DISEASE
     Route: 048
     Dates: start: 2005, end: 201106
  2. NEXIUM [Suspect]
     Indication: GASTROOESOPHAGEAL REFLUX DISEASE
     Route: 048
     Dates: start: 2005, end: 201106
  3. NEXIUM [Suspect]
     Indication: GASTROOESOPHAGEAL REFLUX DISEASE
     Route: 048
     Dates: start: 20050225
  4. NEXIUM [Suspect]
     Indication: GASTROOESOPHAGEAL REFLUX DISEASE
     Route: 048
     Dates: start: 20050225
  5. NEXIUM [Suspect]
     Indication: GASTROOESOPHAGEAL REFLUX DISEASE
     Route: 048
  6. NEXIUM [Suspect]
     Indication: GASTROOESOPHAGEAL REFLUX DISEASE
     Route: 048
  7. OMEPRAZOLE [Suspect]
     Indication: GASTROOESOPHAGEAL REFLUX DISEASE
     Route: 048
     Dates: start: 20090218
  8. OMEPRAZOLE [Suspect]
     Indication: GASTROOESOPHAGEAL REFLUX DISEASE
     Route: 048
     Dates: start: 201106
  9. OMEPRAZOLE [Suspect]
     Indication: GASTROOESOPHAGEAL REFLUX DISEASE
     Route: 048
     Dates: start: 20120103
  10. PROTONIX [Concomitant]
     Dates: start: 2004, end: 2005
  11. ZANTAC [Concomitant]
     Dates: start: 199307, end: 200406
  12. ROLAIDS [Concomitant]
  13. PREMARIN [Concomitant]
     Dates: start: 1993, end: 201201
  14. ESTROPIPATE [Concomitant]
     Dates: start: 201201, end: 201206
  15. VIVELLE -DOT [Concomitant]
     Indication: HORMONE REPLACEMENT THERAPY
     Dates: start: 201211
  16. TUMS [Concomitant]
  17. AMBIEN [Concomitant]
     Indication: INSOMNIA
     Dates: start: 20051121
  18. CLONAZEPAM [Concomitant]
     Indication: PANIC DISORDER
  19. CLONAZEPAM [Concomitant]
     Indication: ANXIETY
  20. DETROL LA [Concomitant]
     Indication: HYPERTONIC BLADDER
  21. DETROL LA [Concomitant]
     Indication: INCONTINENCE
  22. ZYRTEC [Concomitant]
     Indication: MULTIPLE ALLERGIES
     Dates: start: 20070801
  23. LYRICA [Concomitant]
     Indication: NEURALGIA
  24. LYRICA [Concomitant]
     Indication: FIBROMYALGIA
  25. ZOLPIDEM [Concomitant]
     Indication: SLEEP DISORDER
     Dates: start: 20070801
  26. ENABLEX [Concomitant]
     Dates: start: 20070801
  27. LEXAPRO [Concomitant]
     Dates: start: 20070801
  28. CYCLOBENZAPRINE [Concomitant]
     Dates: start: 20090422
  29. DOCUSATE SOD [Concomitant]
     Dates: start: 20090730
  30. ACTONEL [Concomitant]
     Dates: start: 20100104
  31. CITALOPRAM [Concomitant]
     Dates: start: 20120403
  32. DIAZEPAM [Concomitant]
     Dates: start: 20120402
  33. GABAPENTIN [Concomitant]
     Dates: start: 20120403
  34. ALENDRONATE [Concomitant]
     Dates: start: 20120103
  35. METHOCARBAM [Concomitant]
     Dates: start: 20120502
  36. ACYCLOVIR [Concomitant]
     Dates: start: 20120502

REACTIONS (5)
  - Osteoporosis [Unknown]
  - Multiple fractures [Unknown]
  - Osteoarthritis [Unknown]
  - Osteopenia [Unknown]
  - Rheumatoid arthritis [Unknown]
